FAERS Safety Report 24232486 (Version 1)
Quarter: 2024Q3

REPORT INFORMATION
  Report Type: Other
  Country: JP (occurrence: JP)
  Receive Date: 20240821
  Receipt Date: 20240821
  Transmission Date: 20241017
  Serious: Yes (Life-Threatening, Hospitalization)
  Sender: B BRAUN
  Company Number: JP-B.Braun Medical Inc.-2160672

PATIENT
  Age: 65 Year
  Sex: Female
  Weight: 61 kg

DRUGS (1)
  1. MEROPENEM [Suspect]
     Active Substance: MEROPENEM
     Indication: Liver abscess

REACTIONS (1)
  - Drug ineffective [Unknown]
